FAERS Safety Report 4487274-6 (Version None)
Quarter: 2004Q4

REPORT INFORMATION
  Report Type: 
  Country: None (occurrence: None)
  Receive Date: 20041022
  Receipt Date: 20041006
  Transmission Date: 20050328
  Serious: Yes (Death)
  Sender: FDA-Public Use
  Company Number: 2004-BP-09412RO

PATIENT
  Age: 63 Year
  Sex: Male

DRUGS (1)
  1. MIDAZOLAM HC1 SYRUP, 2 MG/ML (MIDAZOLAM HYDROCHLORIDE) [Suspect]
     Dosage: 10 MG, IV
     Route: 042

REACTIONS (1)
  - MULTIPLE DRUG OVERDOSE [None]
